FAERS Safety Report 19719630 (Version 1)
Quarter: 2021Q3

REPORT INFORMATION
  Report Type: Spontaneous
  Country: US (occurrence: US)
  Receive Date: 20210819
  Receipt Date: 20210819
  Transmission Date: 20211014
  Serious: No
  Sender: FDA-Public Use
  Company Number: None

PATIENT
  Age: 76 Year
  Sex: Male
  Weight: 110.25 kg

DRUGS (1)
  1. REPATHA [Suspect]
     Active Substance: EVOLOCUMAB
     Indication: BLOOD CHOLESTEROL INCREASED
     Dosage: ?QUANTITY:1 INJECTION(S);?OTHER FREQUENCY:EVERY 2 WEEKS;?OTHER ROUTE:INJECTED INTO THIGH?

REACTIONS (2)
  - Neuralgia [None]
  - Neuropathy peripheral [None]

NARRATIVE: CASE EVENT DATE: 20210816
